FAERS Safety Report 9187825 (Version 1)
Quarter: 2013Q1

REPORT INFORMATION
  Report Type: Spontaneous
  Country: US (occurrence: US)
  Receive Date: 20130325
  Receipt Date: 20130325
  Transmission Date: 20140127
  Serious: No
  Sender: FDA-Public Use
  Company Number: US-MYLANLABS-2012S1010934

PATIENT
  Age: 65 Year
  Sex: Female
  Weight: 135.17 kg

DRUGS (7)
  1. FENTANYL TRANSDERMAL SYSTEM [Suspect]
     Indication: PAIN
     Route: 062
     Dates: start: 20120309, end: 20120523
  2. OXYCONTIN [Concomitant]
     Indication: PAIN
  3. SAVELLA [Concomitant]
     Indication: FIBROMYALGIA
     Dates: start: 201111
  4. ZYRTEC [Concomitant]
  5. INSULIN [Concomitant]
     Indication: DIABETES MELLITUS
     Route: 058
  6. LANTUS [Concomitant]
     Indication: DIABETES MELLITUS
  7. SYMLIN [Concomitant]
     Indication: WEIGHT DECREASED

REACTIONS (3)
  - Wrong technique in drug usage process [Not Recovered/Not Resolved]
  - Urticaria [Not Recovered/Not Resolved]
  - Face oedema [Not Recovered/Not Resolved]
